FAERS Safety Report 21199162 (Version 1)
Quarter: 2022Q3

REPORT INFORMATION
  Report Type: Spontaneous
  Country: FR (occurrence: FR)
  Receive Date: 20220811
  Receipt Date: 20220811
  Transmission Date: 20221026
  Serious: Yes (Hospitalization)
  Sender: FDA-Public Use
  Company Number: None

PATIENT
  Age: 61 Year
  Sex: Female

DRUGS (11)
  1. PAROXETINE [Suspect]
     Active Substance: PAROXETINE
     Indication: Depression
     Dosage: THERAPY START DATE :  ASKED BUT UNKNOWN, UNIT DOSE : 20 MG, FREQUENCY TIME : 1 DAYS, PAROXETINE BASE
     Route: 065
     Dates: end: 20220630
  2. LOXAPINE [Suspect]
     Active Substance: LOXAPINE
     Indication: Psychotic disorder
     Dosage: UNIT STRENGTH: 25 MG, UNIT DOSE : 100 MG, FREQUENCY TIME : 1 DAYS
     Route: 065
     Dates: end: 20220630
  3. ATARAX [Suspect]
     Active Substance: HYDROXYZINE HYDROCHLORIDE
     Indication: Anxiety
     Dosage: UNIT DOSE AND UNIT STRENGTH : 25 MG, FREQUENCY TIME : 1 DAYS
     Route: 065
     Dates: end: 20220630
  4. METFORMIN HYDROCHLORIDE [Concomitant]
     Active Substance: METFORMIN HYDROCHLORIDE
     Indication: Product used for unknown indication
     Dosage: THERAPY START DATE :  ASKED BUT UNKNOWN, UNIT DOSE :2 GRAM, FREQUENCY TIME : 1 DAYS
     Route: 065
     Dates: end: 20220630
  5. XULTOPHY 100/3.6 [Concomitant]
     Active Substance: INSULIN DEGLUDEC\LIRAGLUTIDE
     Indication: Product used for unknown indication
     Dosage: THERAPY START DATE :  ASKED BUT UNKNOWN, UNIT DOSE : 60 IU, FREQUENCY TIME : 1 DAYS
     Dates: end: 20220630
  6. IMOVANE [Concomitant]
     Active Substance: ZOPICLONE
     Indication: Product used for unknown indication
     Dosage: THERAPY START DATE :  ASKED BUT UNKNOWN, UNIT DOSE AND UNIT STRENGTH :7.5 MG, FREQUENCY TIME : 1 DAY
     Dates: end: 20220630
  7. ABILIFY [Concomitant]
     Active Substance: ARIPIPRAZOLE
     Indication: Product used for unknown indication
     Dosage: UNIT DOSE AND UNIT STRENGTH : 10 MG, FREQUENCY TIME : 1 DAYS, START DATE ASKU
     Dates: end: 20220630
  8. TAHOR [Concomitant]
     Active Substance: ATORVASTATIN CALCIUM
     Indication: Product used for unknown indication
     Dosage: UNIT DOSE AND UNIT STRENGTH : 40 MG,  FREQUENCY TIME : 1 DAYS
     Dates: end: 20220630
  9. ATENOLOL [Concomitant]
     Active Substance: ATENOLOL
     Indication: Product used for unknown indication
     Dosage: THERAPY START DATE :  ASKED BUT UNKNOWN, UNIT DOSE : 100 MG, FREQUENCY TIME : 1 DAYS
     Dates: end: 20220630
  10. URISPAS [Concomitant]
     Active Substance: FLAVOXATE HYDROCHLORIDE
     Indication: Product used for unknown indication
     Dosage: THERAPY START DATE :  ASKED BUT UNKNOWN, UNIT DOSE : 600 MG , FREQUENCY TIME : 1 DAYS
     Dates: end: 20220630
  11. NOVORAPID [Concomitant]
     Active Substance: INSULIN ASPART
     Indication: Product used for unknown indication
     Dosage: THERAPY START DATE :  ASKED BUT UNKNOWN, UNIT DOSE : 74 IU, FREQUENCY TIME : 1 DAYS
     Dates: end: 20220630

REACTIONS (1)
  - Hyponatraemia [Recovered/Resolved]

NARRATIVE: CASE EVENT DATE: 20220630
